FAERS Safety Report 25095117 (Version 1)
Quarter: 2025Q1

REPORT INFORMATION
  Report Type: Spontaneous
  Country: DE (occurrence: DE)
  Receive Date: 20250319
  Receipt Date: 20250319
  Transmission Date: 20250409
  Serious: Yes (Hospitalization)
  Sender: BAYER HEALTHCARE PHARMACEUTICALS INC.
  Company Number: DE-BAYER-2025A035238

PATIENT
  Age: 58 Year
  Sex: Female

DRUGS (10)
  1. RIOCIGUAT [Suspect]
     Active Substance: RIOCIGUAT
     Indication: Pulmonary arterial hypertension
  2. WINREVAIR [Concomitant]
     Active Substance: SOTATERCEPT-CSRK
     Indication: Pulmonary arterial hypertension
     Dates: start: 20250131, end: 20250131
  3. TREPROSTINIL [Concomitant]
     Active Substance: TREPROSTINIL
  4. TORSEMIDE [Concomitant]
     Active Substance: TORSEMIDE
  5. LEVOTHYROXINE [Concomitant]
     Active Substance: LEVOTHYROXINE
  6. AMBRISENTAN [Concomitant]
     Active Substance: AMBRISENTAN
  7. POTASSIUM CITRATE [Concomitant]
     Active Substance: POTASSIUM CITRATE
  8. PREDNISOLONE [Concomitant]
     Active Substance: PREDNISOLONE
  9. ALLOPURINOL [Concomitant]
     Active Substance: ALLOPURINOL
  10. RAMIPRIL [Concomitant]
     Active Substance: RAMIPRIL

REACTIONS (1)
  - Oedema [Recovered/Resolved]
